FAERS Safety Report 20895790 (Version 1)
Quarter: 2022Q2

REPORT INFORMATION
  Report Type: Spontaneous
  Country: US (occurrence: US)
  Receive Date: 20220531
  Receipt Date: 20220531
  Transmission Date: 20220721
  Serious: No
  Sender: FDA-Public Use
  Company Number: US-JNJFOC-20220556852

PATIENT

DRUGS (2)
  1. TOPAMAX [Suspect]
     Active Substance: TOPIRAMATE
     Indication: Tremor
     Route: 048
  2. TOPAMAX [Suspect]
     Active Substance: TOPIRAMATE
     Route: 048

REACTIONS (2)
  - Inappropriate schedule of product administration [Unknown]
  - Tremor [Unknown]
